FAERS Safety Report 20325529 (Version 1)
Quarter: 2022Q1

REPORT INFORMATION
  Report Type: Spontaneous
  Country: US (occurrence: US)
  Receive Date: 20220112
  Receipt Date: 20220112
  Transmission Date: 20220423
  Serious: No
  Sender: FDA-Public Use
  Company Number: US-NOVARTISTESTPH-NVSC2022US005603

PATIENT
  Age: 85 Year
  Sex: Female

DRUGS (1)
  1. VOLTAREN [Suspect]
     Active Substance: DICLOFENAC SODIUM
     Indication: Bursitis
     Dosage: UNK
     Route: 065

REACTIONS (5)
  - Drug effective for unapproved indication [Recovering/Resolving]
  - Product use in unapproved indication [Recovering/Resolving]
  - Wrong technique in product usage process [Recovering/Resolving]
  - Product administered at inappropriate site [Recovering/Resolving]
  - Inappropriate schedule of product administration [Recovering/Resolving]
